FAERS Safety Report 23203508 (Version 2)
Quarter: 2023Q4

REPORT INFORMATION
  Report Type: Spontaneous
  Country: US (occurrence: US)
  Receive Date: 20231120
  Receipt Date: 20231128
  Transmission Date: 20240109
  Serious: Yes (Other)
  Sender: FDA-Public Use
  Company Number: US-drreddys-SPO/USA/23/0183535

PATIENT
  Age: 26 Day
  Sex: Female

DRUGS (6)
  1. LEVETIRACETAM [Suspect]
     Active Substance: LEVETIRACETAM
     Indication: Neonatal seizure
     Dosage: 60 MG/KG DIVIDED TWICE DAILY INSTEAD
     Route: 042
  2. LEVETIRACETAM [Suspect]
     Active Substance: LEVETIRACETAM
     Dosage: 100 MG/KG/DAY DIVIDED TWICE DAILY
     Route: 042
  3. FOSPHENYTOIN SODIUM [Suspect]
     Active Substance: FOSPHENYTOIN SODIUM
     Indication: Neonatal seizure
     Dosage: 6 MG/KG DIVIDED TWICE DAILY
     Route: 042
  4. PHENYTOIN [Suspect]
     Active Substance: PHENYTOIN
     Indication: Neonatal seizure
  5. PHENOBARBITAL [Suspect]
     Active Substance: PHENOBARBITAL
     Indication: Neonatal seizure
     Dosage: 2 MG/KG TWICE DAILY
     Route: 042
  6. PHENOBARBITAL [Suspect]
     Active Substance: PHENOBARBITAL
     Dosage: 6 MG/KG/DAY DIVIDED TWICE DAILY
     Route: 042

REACTIONS (2)
  - Intraventricular haemorrhage neonatal [Unknown]
  - Electrolyte imbalance [Unknown]
